FAERS Safety Report 9734751 (Version 1)
Quarter: 2013Q4

REPORT INFORMATION
  Report Type: Report from Study
  Country: None (occurrence: US)
  Receive Date: 20131206
  Receipt Date: 20131206
  Transmission Date: 20140711
  Serious: Yes (Disabling, Other)
  Sender: FDA-Public Use
  Company Number: US-ACCORD-020661

PATIENT
  Sex: 0

DRUGS (6)
  1. PREDNISOLONE ACETATE [Concomitant]
     Route: 061
  2. MITOMYCIN [Suspect]
     Indication: WOUND HEALING NORMAL
     Dosage: RECEIVED 0.4 MG/ML CONCENTRATION
  3. NEOMYCIN SULFATE [Concomitant]
  4. OFLOXACIN [Concomitant]
     Route: 061
  5. POLYMYXIN B SULFATE [Concomitant]
  6. DEXAMETHASONE [Concomitant]
     Dosage: NIGHTLY APPLICATION

REACTIONS (3)
  - Choroidal haemorrhage [Unknown]
  - Blindness [Unknown]
  - Off label use [Unknown]
